FAERS Safety Report 12668686 (Version 1)
Quarter: 2016Q3

REPORT INFORMATION
  Report Type: Spontaneous
  Country: GB (occurrence: GB)
  Receive Date: 20160819
  Receipt Date: 20160819
  Transmission Date: 20161109
  Serious: Yes (Other)
  Sender: FDA-Public Use
  Company Number: GB-ROCHE-1814512

PATIENT
  Age: 13 Year
  Sex: Female

DRUGS (1)
  1. RITUXIMAB [Suspect]
     Active Substance: RITUXIMAB
     Indication: BRAIN OEDEMA
     Route: 065

REACTIONS (6)
  - Brain injury [Unknown]
  - Amnesia [Unknown]
  - Disinhibition [Unknown]
  - Asthenia [Unknown]
  - Off label use [Unknown]
  - Wheelchair user [Unknown]
